FAERS Safety Report 20489670 (Version 1)
Quarter: 2022Q1

REPORT INFORMATION
  Report Type: Report from Study
  Country: US (occurrence: US)
  Receive Date: 20220218
  Receipt Date: 20220218
  Transmission Date: 20220423
  Serious: Yes (Death)
  Sender: FDA-Public Use
  Company Number: US-ABBVIE-22K-163-4283901-00

PATIENT
  Sex: Male

DRUGS (1)
  1. VENCLEXTA [Suspect]
     Active Substance: VENETOCLAX
     Indication: Acute myelomonocytic leukaemia
     Dosage: 10MG AND 50MG TABLET TAKE 70 MG BY MOUTH ONCE DAILY 14 DAYS ON, 14 DAYS OFF
     Route: 048

REACTIONS (1)
  - Death [Fatal]
